FAERS Safety Report 17523744 (Version 1)
Quarter: 2020Q1

REPORT INFORMATION
  Report Type: Spontaneous
  Country: CA (occurrence: CA)
  Receive Date: 20200311
  Receipt Date: 20200311
  Transmission Date: 20200409
  Serious: Yes (Other)
  Sender: FDA-Public Use
  Company Number: CA-ROCHE-2564540

PATIENT
  Age: 59 Year
  Sex: Male

DRUGS (14)
  1. CRESTOR [Concomitant]
     Active Substance: ROSUVASTATIN CALCIUM
  2. TECTA [Concomitant]
     Active Substance: PANTOPRAZOLE MAGNESIUM
     Route: 065
  3. MYCOPHENOLATE SODIUM [Concomitant]
     Active Substance: MYCOPHENOLATE SODIUM
  4. RITUXAN [Suspect]
     Active Substance: RITUXIMAB
     Indication: PEMPHIGUS
     Route: 042
  5. INSULIN [Concomitant]
     Active Substance: INSULIN NOS
     Route: 048
  6. METHYLPREDNISOLONE SODIUM SUCCINATE. [Suspect]
     Active Substance: METHYLPREDNISOLONE SODIUM SUCCINATE
     Indication: PREMEDICATION
     Route: 042
  7. ACTONEL [Concomitant]
     Active Substance: RISEDRONATE SODIUM
  8. PERINDOPRIL [Concomitant]
     Active Substance: PERINDOPRIL
  9. DIPHENHYDRAMINE. [Concomitant]
     Active Substance: DIPHENHYDRAMINE
     Indication: PREMEDICATION
     Route: 048
  10. ATIVAN [Concomitant]
     Active Substance: LORAZEPAM
  11. ACETAMINOPHEN. [Concomitant]
     Active Substance: ACETAMINOPHEN
     Indication: PREMEDICATION
     Route: 048
  12. MYFORTIC [Concomitant]
     Active Substance: MYCOPHENOLATE SODIUM
  13. PREDNISONE. [Concomitant]
     Active Substance: PREDNISONE
  14. TYLENOL [Concomitant]
     Active Substance: ACETAMINOPHEN

REACTIONS (5)
  - Nervousness [Unknown]
  - Dry mouth [Unknown]
  - Blood glucose increased [Unknown]
  - Blood pressure increased [Unknown]
  - Dyspepsia [Unknown]
